FAERS Safety Report 19367323 (Version 1)
Quarter: 2021Q2

REPORT INFORMATION
  Report Type: Spontaneous
  Country: GB (occurrence: GB)
  Receive Date: 20210603
  Receipt Date: 20210603
  Transmission Date: 20210717
  Serious: Yes (Death)
  Sender: FDA-Public Use
  Company Number: GB-PFIZER INC-2021605846

PATIENT
  Age: 55 Year
  Sex: Female

DRUGS (2)
  1. INLYTA [Suspect]
     Active Substance: AXITINIB
     Indication: CLEAR CELL RENAL CELL CARCINOMA
     Dosage: 5 MG, 2X/DAY
     Dates: start: 20201009
  2. AVELUMAB [Suspect]
     Active Substance: AVELUMAB
     Indication: CLEAR CELL RENAL CELL CARCINOMA
     Dosage: 800 MG, EVERY 2 WEEKS
     Dates: start: 20201009

REACTIONS (2)
  - Off label use [Unknown]
  - Death [Fatal]
